FAERS Safety Report 4758735-7 (Version None)
Quarter: 2005Q3

REPORT INFORMATION
  Report Type: 
  Country: None (occurrence: None)
  Receive Date: 20050831
  Receipt Date: 20050831
  Transmission Date: 20060218
  Serious: Yes (Other)
  Sender: FDA-Public Use
  Company Number: None

PATIENT
  Age: 60 Year
  Sex: Female
  Weight: 101.6057 kg

DRUGS (1)
  1. PAROXETINE 30 MG [Suspect]
     Indication: DEPRESSION
     Dosage: ONE PO QD DAY
     Route: 048
     Dates: start: 20050818

REACTIONS (4)
  - CRYING [None]
  - DEPRESSION [None]
  - INSOMNIA [None]
  - THERAPEUTIC RESPONSE UNEXPECTED WITH DRUG SUBSTITUTION [None]
